FAERS Safety Report 20008321 (Version 1)
Quarter: 2021Q4

REPORT INFORMATION
  Report Type: Spontaneous
  Country: US (occurrence: US)
  Receive Date: 20211028
  Receipt Date: 20211028
  Transmission Date: 20220303
  Serious: No
  Sender: FDA-Public Use
  Company Number: US-ALBIREO AB-2021ALB000088

PATIENT
  Age: 5 Month
  Sex: Male

DRUGS (1)
  1. BYLVAY [Suspect]
     Active Substance: ODEVIXIBAT
     Indication: Progressive familial intrahepatic cholestasis
     Route: 048
     Dates: start: 20210828

REACTIONS (3)
  - Product use complaint [Unknown]
  - Skin disorder [Unknown]
  - Therapeutic response unexpected [Unknown]
